FAERS Safety Report 7309425-8 (Version None)
Quarter: 2011Q1

REPORT INFORMATION
  Report Type: 
  Country: None (occurrence: None)
  Receive Date: 20110223
  Receipt Date: 20110211
  Transmission Date: 20110831
  Serious: Yes (Death, Hospitalization)
  Sender: FDA-Public Use
  Company Number: GR-AMGEN-GRCCT2011008373

PATIENT
  Age: 78 Year
  Sex: Female

DRUGS (9)
  1. LOPERAMIDE HYDROCHLORIDE [Concomitant]
     Dosage: 2 MG, UNK
     Dates: start: 20101106, end: 20110117
  2. OXALIPLATIN [Concomitant]
     Indication: COLORECTAL CANCER METASTATIC
     Dosage: 205 MG, Q3WK
     Route: 042
     Dates: start: 20101018, end: 20110103
  3. ONDANSETRON [Concomitant]
     Indication: PREMEDICATION
     Dosage: 8 MG, QD
     Route: 042
     Dates: start: 20101018, end: 20110103
  4. RANITIDINE [Concomitant]
     Indication: PREMEDICATION
     Dosage: 150 MG, QD
     Route: 042
     Dates: start: 20101018, end: 20110103
  5. DEXAMETHASONE [Concomitant]
     Indication: PREMEDICATION
     Dosage: 20 MG, UNK
     Route: 042
     Dates: start: 20101018, end: 20110103
  6. XELODA [Concomitant]
     Dosage: 2300 MG, UNK
     Dates: start: 20101018, end: 20110116
  7. FENISTIL [Concomitant]
     Indication: PREMEDICATION
     Dosage: 4 MG, QD
     Route: 042
     Dates: start: 20101018, end: 20110103
  8. PANITUMUMAB [Suspect]
     Dosage: 567 MG, Q3WK
     Route: 042
     Dates: start: 20101018, end: 20110103
  9. RIFACOL [Concomitant]
     Dosage: 200 MG, UNK
     Dates: start: 20101106, end: 20101114

REACTIONS (6)
  - DEPRESSED LEVEL OF CONSCIOUSNESS [None]
  - DYSPNOEA [None]
  - SOMNOLENCE [None]
  - DIARRHOEA [None]
  - VOMITING [None]
  - ACUTE RESPIRATORY FAILURE [None]
